FAERS Safety Report 10745760 (Version 3)
Quarter: 2015Q1

REPORT INFORMATION
  Report Type: Report from Study
  Country: CA (occurrence: CA)
  Receive Date: 20150128
  Receipt Date: 20150206
  Transmission Date: 20150721
  Serious: Yes (Hospitalization, Other)
  Sender: FDA-Public Use
  Company Number: CA-ABBVIE-15K-028-1334429-00

PATIENT
  Age: 50 Year
  Sex: Male

DRUGS (4)
  1. VIT B1 [Concomitant]
     Indication: PRODUCT USED FOR UNKNOWN INDICATION
  2. HUMIRA [Suspect]
     Active Substance: ADALIMUMAB
     Indication: CROHN^S DISEASE
     Route: 058
     Dates: start: 20130320, end: 20141226
  3. HUMIRA [Suspect]
     Active Substance: ADALIMUMAB
     Route: 058
     Dates: start: 20150130
  4. CODEINE [Concomitant]
     Active Substance: CODEINE
     Indication: PRODUCT USED FOR UNKNOWN INDICATION
     Route: 048

REACTIONS (13)
  - Nasopharyngitis [Unknown]
  - Asthma [Unknown]
  - Actinic keratosis [Not Recovered/Not Resolved]
  - Alcohol withdrawal syndrome [Recovered/Resolved]
  - Agitation [Recovering/Resolving]
  - Acidosis [Recovered/Resolved]
  - Anxiety [Not Recovered/Not Resolved]
  - Blood creatinine increased [Recovered/Resolved]
  - Respiratory tract infection [Recovering/Resolving]
  - Blood glucose increased [Unknown]
  - Pneumonia staphylococcal [Recovered/Resolved with Sequelae]
  - Chronic obstructive pulmonary disease [Unknown]
  - Hypertension [Unknown]

NARRATIVE: CASE EVENT DATE: 201501
